FAERS Safety Report 9461792 (Version 1)
Quarter: 2013Q3

REPORT INFORMATION
  Report Type: Spontaneous
  Country: US (occurrence: US)
  Receive Date: 20130816
  Receipt Date: 20130816
  Transmission Date: 20140515
  Serious: No
  Sender: FDA-Public Use
  Company Number: US-BAYER-2013-098853

PATIENT
  Age: 15 Year
  Sex: Female
  Weight: 82 kg

DRUGS (3)
  1. ALEVE CAPLET [Suspect]
     Dosage: 12 DF, OTHER
     Route: 048
     Dates: start: 20130810, end: 20130810
  2. ALBUTEROL INHALER [Concomitant]
     Dosage: UNK, PRN
  3. ADVAIR [Concomitant]
     Dosage: UNK, PRN

REACTIONS (1)
  - Extra dose administered [None]
